FAERS Safety Report 23226264 (Version 6)
Quarter: 2024Q4

REPORT INFORMATION
  Report Type: Spontaneous
  Country: US (occurrence: US)
  Receive Date: 20231124
  Receipt Date: 20241001
  Transmission Date: 20250114
  Serious: Yes (Other)
  Sender: BRISTOL MYERS SQUIBB
  Company Number: US-BRISTOL-MYERS SQUIBB COMPANY-2023-169659

PATIENT
  Age: 75 Year
  Sex: Male

DRUGS (2)
  1. LENALIDOMIDE [Suspect]
     Active Substance: LENALIDOMIDE
     Indication: Bone cancer
     Dosage: TAKE 1 CAPSULE BY MOUTH IN THE MORNING FOR 21 DAYS FOLLOWED BY 7 DAYS OFF
     Route: 048
     Dates: start: 20221229
  2. LENALIDOMIDE [Suspect]
     Active Substance: LENALIDOMIDE
     Dosage: TAKE 1 CAPSULE BY MOUTH EVERY MORNING FOR 21 DAYS, THEN 7 DAYS
     Route: 048

REACTIONS (9)
  - Amnesia [Not Recovered/Not Resolved]
  - Insomnia [Not Recovered/Not Resolved]
  - Nasopharyngitis [Recovered/Resolved]
  - Skin exfoliation [Not Recovered/Not Resolved]
  - Hypoaesthesia [Not Recovered/Not Resolved]
  - Erythema [Not Recovered/Not Resolved]
  - Dry skin [Not Recovered/Not Resolved]
  - Skin tightness [Not Recovered/Not Resolved]
  - Product dose omission issue [Unknown]
